FAERS Safety Report 6926216-8 (Version None)
Quarter: 2010Q3

REPORT INFORMATION
  Report Type: 
  Country: None (occurrence: None)
  Receive Date: 20100813
  Receipt Date: 20100813
  Transmission Date: 20110219
  Serious: No
  Sender: FDA-Public Use
  Company Number: None

PATIENT
  Age: 39 Year
  Sex: Female

DRUGS (3)
  1. VALIUM [Suspect]
     Indication: ABNORMAL BEHAVIOUR
     Dosage: 10MG IV
     Route: 042
     Dates: start: 20100705, end: 20100705
  2. VALIUM [Suspect]
     Indication: AGGRESSION
     Dosage: 10MG IV
     Route: 042
     Dates: start: 20100705, end: 20100705
  3. VALIUM [Suspect]
     Indication: AGITATION
     Dosage: 10MG IV
     Route: 042
     Dates: start: 20100705, end: 20100705

REACTIONS (3)
  - LETHARGY [None]
  - RESPIRATORY DEPRESSION [None]
  - SOMNOLENCE [None]
